FAERS Safety Report 8390283-8 (Version None)
Quarter: 2012Q2

REPORT INFORMATION
  Report Type: 
  Country: None (occurrence: None)
  Receive Date: 20120522
  Receipt Date: 20120510
  Transmission Date: 20120825
  Serious: Yes (Hospitalization)
  Sender: FDA-Public Use
  Company Number: ENTC2012-0208

PATIENT
  Age: 84 Year
  Sex: Female

DRUGS (4)
  1. LEXATIN [Concomitant]
  2. AZILECT [Suspect]
     Indication: PARKINSON'S DISEASE
     Dosage: 1 MG DAILY
  3. STALEVO 100 [Suspect]
     Indication: PARKINSON'S DISEASE
     Dosage: 50/12.5/200 MG MG EVERY 8 HOURS ORAL
     Route: 048
     Dates: start: 20111101, end: 20120101
  4. ATACAND [Concomitant]

REACTIONS (2)
  - RENAL FAILURE CHRONIC [None]
  - DIARRHOEA [None]
